FAERS Safety Report 9099386 (Version 2)
Quarter: 2014Q3

REPORT INFORMATION
  Report Type: Spontaneous
  Country: US (occurrence: US)
  Receive Date: 20130214
  Receipt Date: 20140801
  Transmission Date: 20150326
  Serious: Yes (Hospitalization, Other)
  Sender: FDA-Public Use
  Company Number: US-009507513-2010SP004586

PATIENT
  Sex: Female
  Weight: 63.5 kg

DRUGS (4)
  1. NUVARING [Suspect]
     Active Substance: ETHINYL ESTRADIOL\ETONOGESTREL
     Indication: ENDOMETRIOSIS
     Dosage: UNK
     Dates: start: 200805, end: 200808
  2. IMITREX [Concomitant]
     Active Substance: SUMATRIPTAN\SUMATRIPTAN SUCCINATE
     Indication: MIGRAINE
     Dates: start: 1997, end: 2008
  3. MOTRIN [Concomitant]
     Active Substance: IBUPROFEN
     Indication: PAIN
     Dosage: 200 MG, PRN
  4. NUVARING [Suspect]
     Active Substance: ETHINYL ESTRADIOL\ETONOGESTREL
     Indication: CONTRACEPTION
     Dates: start: 200510, end: 200609

REACTIONS (20)
  - Deep vein thrombosis [Unknown]
  - Uterine disorder [Unknown]
  - Foot deformity [Unknown]
  - Adhesion [Unknown]
  - Seasonal allergy [Unknown]
  - Back pain [Unknown]
  - Polycystic ovaries [Unknown]
  - Pulmonary embolism [Unknown]
  - Dysmenorrhoea [Unknown]
  - Foot deformity [Unknown]
  - Atelectasis [Unknown]
  - Menorrhagia [Unknown]
  - Neck pain [Unknown]
  - Temporomandibular joint syndrome [Unknown]
  - Arthralgia [Unknown]
  - Diarrhoea [Unknown]
  - Migraine [Unknown]
  - Rhinoplasty [Unknown]
  - Abdominal pain [Unknown]
  - Off label use [Unknown]

NARRATIVE: CASE EVENT DATE: 200511
